FAERS Safety Report 11415136 (Version 1)
Quarter: 2015Q3

REPORT INFORMATION
  Report Type: Spontaneous
  Country: US (occurrence: None)
  Receive Date: 20150824
  Receipt Date: 20150824
  Transmission Date: 20151125
  Serious: No
  Sender: FDA-Public Use
  Company Number: None

PATIENT
  Age: 64 Year
  Sex: Female
  Weight: 90.72 kg

DRUGS (1)
  1. EQUATE FEXPFEMEDOME 180 MG DIST BY WAL-MART [Suspect]
     Active Substance: FEXOFENADINE HYDROCHLORIDE
     Route: 048
     Dates: start: 20150801, end: 20150822

REACTIONS (3)
  - Product colour issue [None]
  - Product shape issue [None]
  - Product commingling [None]

NARRATIVE: CASE EVENT DATE: 20150822
